FAERS Safety Report 8204991-2 (Version None)
Quarter: 2012Q1

REPORT INFORMATION
  Report Type: 
  Country: None (occurrence: None)
  Receive Date: 20120313
  Receipt Date: 20120302
  Transmission Date: 20120608
  Serious: Yes (Hospitalization)
  Sender: FDA-Public Use
  Company Number: DE-JNJFOC-20120204811

PATIENT
  Sex: Female

DRUGS (10)
  1. PALEXIA RETARD [Suspect]
     Route: 048
     Dates: start: 20111220, end: 20111220
  2. VENLAFAXINE [Concomitant]
     Route: 065
     Dates: start: 20111217, end: 20111219
  3. PANTOPRAZOLE [Concomitant]
     Route: 048
  4. FERROUS SULFATE TAB [Concomitant]
     Route: 048
  5. FLUPIRTINE MALEATE [Concomitant]
     Route: 048
     Dates: end: 20111220
  6. PALEXIA RETARD [Suspect]
     Indication: PRODUCT USED FOR UNKNOWN INDICATION
     Route: 048
     Dates: start: 20111216, end: 20111219
  7. ENOXAPARIN SODIUM [Concomitant]
     Route: 065
  8. METAMIZOL [Concomitant]
     Route: 048
  9. VENLAFAXINE [Concomitant]
     Route: 065
     Dates: start: 20111220, end: 20111220
  10. QUETIAPINE [Concomitant]
     Route: 048

REACTIONS (2)
  - CONFUSIONAL STATE [None]
  - SOMNOLENCE [None]
